FAERS Safety Report 15253968 (Version 2)
Quarter: 2018Q3

REPORT INFORMATION
  Report Type: Report from Study
  Country: DE (occurrence: DE)
  Receive Date: 20180808
  Receipt Date: 20180810
  Transmission Date: 20181010
  Serious: Yes (Death, Other)
  Sender: FDA-Public Use
  Company Number: DE-TEVA-2018-DE-935568

PATIENT
  Age: 58 Year
  Sex: Male
  Weight: 81 kg

DRUGS (30)
  1. PARACODEIN [Concomitant]
     Indication: PRODUCTIVE COUGH
     Route: 048
     Dates: start: 20171228
  2. NOVALGIN (METAMIZOLE SODIUM) [Concomitant]
     Active Substance: METAMIZOLE SODIUM
     Indication: TUMOUR PAIN
     Dosage: 2250 MILLIGRAM DAILY; 2250 MILLIGRAM
     Route: 048
     Dates: start: 201711
  3. MCP [Concomitant]
     Active Substance: METOCLOPRAMIDE HYDROCHLORIDE
     Indication: PROPHYLAXIS
     Route: 048
     Dates: start: 20171201
  4. TOREM [Concomitant]
     Active Substance: TORSEMIDE
     Indication: HYPERTENSION
     Dosage: 5 MILLIGRAM DAILY; 5 MILLIGRAM
     Route: 048
  5. PALLADON RET. [Concomitant]
     Indication: TUMOUR PAIN
     Dosage: 8 MILLIGRAM DAILY; 8 MILLIGRAM
     Route: 048
     Dates: start: 201711, end: 201712
  6. ABRAXANE [Suspect]
     Active Substance: PACLITAXEL
     Route: 041
     Dates: start: 20180110
  7. PANTOZOL [Concomitant]
     Active Substance: PANTOPRAZOLE SODIUM
     Indication: PROPHYLAXIS
     Dosage: 40 MILLIGRAM DAILY;
     Route: 048
  8. L?THYROXIN [Concomitant]
     Active Substance: LEVOTHYROXINE SODIUM
     Indication: HYPOTHYROIDISM
     Dosage: 100 MICROGRAM DAILY;
     Route: 048
     Dates: end: 201712
  9. FENISTIL [Concomitant]
     Active Substance: DIMETHINDENE
     Indication: PROPHYLAXIS
     Route: 041
     Dates: start: 20171130, end: 20180110
  10. FORTECORTIN [Concomitant]
     Active Substance: DEXAMETHASONE
     Indication: DYSPNOEA
     Dosage: 8 MILLIGRAM DAILY; 8 MILLIGRAM
     Route: 048
     Dates: start: 201711
  11. SEVREDOL [Concomitant]
     Active Substance: MORPHINE
     Route: 048
     Dates: start: 20180110
  12. MOVICOL [Concomitant]
     Active Substance: POLYETHYLENE GLYCOL 3350\POTASSIUM CHLORIDE\SODIUM BICARBONATE\SODIUM CHLORIDE
     Indication: PROPHYLAXIS
     Dosage: 13.81 GRAM DAILY; 13.81 GRAM
     Route: 048
  13. MST [Concomitant]
     Active Substance: MORPHINE SULFATE\NALTREXONE HYDROCHLORIDE
     Indication: TUMOUR PAIN
     Dosage: 20 MILLIGRAM DAILY; 20 MILLIGRAM
     Route: 048
     Dates: start: 201712
  14. SEVREDOL [Concomitant]
     Active Substance: MORPHINE
     Indication: TUMOUR PAIN
     Dosage: 20 MILLIGRAM DAILY;
     Route: 048
  15. STEROFUNDIN BG?5 [Concomitant]
     Indication: PROPHYLAXIS
     Dosage: 500 ML DAILY;
     Route: 065
     Dates: start: 20180117, end: 20180117
  16. DULCOLAX NOS [Concomitant]
     Active Substance: BISACODYL OR DOCUSATE SODIUM
     Indication: CONSTIPATION
     Dosage: 99 MILLIGRAM DAILY; 99 MILLIGRAM
     Route: 048
     Dates: start: 20180117, end: 20180117
  17. RED BLOOD CELLS [Concomitant]
     Active Substance: HUMAN RED BLOOD CELL
     Dosage: 2 PACK
     Route: 041
     Dates: start: 20171222, end: 20171229
  18. RED BLOOD CELLS [Concomitant]
     Active Substance: HUMAN RED BLOOD CELL
     Dosage: 2 PACK
     Route: 041
     Dates: start: 20180117, end: 20180117
  19. MAGNESIUM VERLA [Concomitant]
     Active Substance: MAGNESIUM
     Indication: PROPHYLAXIS
     Dosage: 240 MILLIGRAM DAILY; 240 MILLIGRAM
     Route: 048
     Dates: end: 20171201
  20. RED BLOOD CELLS [Concomitant]
     Active Substance: HUMAN RED BLOOD CELL
     Indication: ANAEMIA
     Dosage: 2 PACKS
     Route: 041
     Dates: start: 20171207, end: 20171207
  21. FORTECORTIN [Concomitant]
     Active Substance: DEXAMETHASONE
     Indication: PROPHYLAXIS
     Route: 048
     Dates: start: 20171201
  22. NOVALGIN (METAMIZOLE SODIUM) [Concomitant]
     Active Substance: METAMIZOLE SODIUM
     Dosage: 1 GRAM DAILY;
     Route: 041
     Dates: start: 20180117, end: 20180117
  23. CARBOPLATIN. [Suspect]
     Active Substance: CARBOPLATIN
     Indication: NON-SMALL CELL LUNG CANCER
     Dosage: 3 MG MIN/ML
     Route: 041
     Dates: start: 20171130
  24. ABRAXANE [Suspect]
     Active Substance: PACLITAXEL
     Route: 041
     Dates: start: 20171130
  25. L?THYROXIN [Concomitant]
     Active Substance: LEVOTHYROXINE SODIUM
     Dosage: 125 MICROGRAM DAILY;
     Route: 048
     Dates: start: 201712
  26. KEVATRIL [Concomitant]
     Active Substance: GRANISETRON HYDROCHLORIDE
     Indication: PROPHYLAXIS
     Route: 041
     Dates: start: 20171130
  27. CLEXANE [Concomitant]
     Active Substance: ENOXAPARIN SODIUM
     Indication: PULMONARY EMBOLISM
     Dosage: 1.8 ML DAILY; 1.8 MILLILITER
     Route: 058
     Dates: start: 201711
  28. STEROFUNDIN BG?5 [Concomitant]
     Dosage: 500 ML DAILY;
     Route: 065
     Dates: start: 20180124, end: 20180124
  29. RED BLOOD CELLS [Concomitant]
     Active Substance: HUMAN RED BLOOD CELL
     Dosage: 1 UNKNOWN DAILY; 2 PACKS
     Route: 041
     Dates: start: 20171222, end: 20171229
  30. RANITIC [Concomitant]
     Active Substance: RANITIDINE HYDROCHLORIDE
     Indication: PROPHYLAXIS
     Route: 041
     Dates: start: 20171130

REACTIONS (3)
  - Hypokalaemia [Recovering/Resolving]
  - Lung infection [Fatal]
  - Non-small cell lung cancer [Fatal]

NARRATIVE: CASE EVENT DATE: 20180117
